FAERS Safety Report 24995512 (Version 1)
Quarter: 2025Q1

REPORT INFORMATION
  Report Type: Spontaneous
  Country: US (occurrence: US)
  Receive Date: 20250221
  Receipt Date: 20250221
  Transmission Date: 20250408
  Serious: No
  Sender: MYLAN
  Company Number: US-MYLANLABS-2025M1013764

PATIENT
  Sex: Female

DRUGS (1)
  1. LYRICA [Suspect]
     Active Substance: PREGABALIN
     Indication: Sedation
     Dosage: 25 MILLIGRAM, BID (1 CAPSULE BY ORAL ROUTE 2 TIMES EVERY DAY)
     Route: 048

REACTIONS (1)
  - Off label use [Unknown]
